FAERS Safety Report 7222585-2 (Version None)
Quarter: 2011Q1

REPORT INFORMATION
  Report Type: 
  Country: None (occurrence: None)
  Receive Date: 20110112
  Receipt Date: 20101222
  Transmission Date: 20110831
  Serious: No
  Sender: FDA-Public Use
  Company Number: US-B.I. PHARMACEUTICALS,INC./RIDGEFIELD-2010-BP-15343BP

PATIENT
  Sex: Female

DRUGS (6)
  1. SYNTHROID [Concomitant]
     Indication: HYPOTHYROIDISM
     Dosage: 0.125 MG
     Route: 048
  2. SERTRALINE HYDROCHLORIDE [Concomitant]
     Indication: DEPRESSION
     Dosage: 50 MG
     Route: 048
  3. ASPIRIN [Concomitant]
     Indication: PROPHYLAXIS
     Dosage: 81 MG
     Route: 048
  4. FUROSEMIDE [Concomitant]
     Indication: HYPERTENSION
     Dosage: 20 MG
     Route: 048
  5. PRADAXA [Suspect]
     Indication: ATRIAL FIBRILLATION
     Route: 048
     Dates: start: 20101101
  6. MIDRODRINE [Concomitant]
     Indication: HYPERTENSION
     Dosage: 15 MG
     Route: 048

REACTIONS (1)
  - FATIGUE [None]
